FAERS Safety Report 8214542-4 (Version None)
Quarter: 2012Q1

REPORT INFORMATION
  Report Type: 
  Country: None (occurrence: None)
  Receive Date: 20120313
  Receipt Date: 20120227
  Transmission Date: 20120608
  Serious: Yes (Death, Other)
  Sender: FDA-Public Use
  Company Number: 2012S1000066

PATIENT
  Sex: Male

DRUGS (1)
  1. INOMAX [Suspect]
     Indication: HYPOXIA
     Dosage: 20 PPM;CONT;INH
     Route: 055
     Dates: start: 20111106, end: 20111107

REACTIONS (2)
  - RESPIRATORY FAILURE [None]
  - DRUG INEFFECTIVE [None]
